FAERS Safety Report 7093111-6 (Version None)
Quarter: 2010Q4

REPORT INFORMATION
  Report Type: 
  Country: None (occurrence: None)
  Receive Date: 20101110
  Receipt Date: 20101029
  Transmission Date: 20110411
  Serious: Yes (Life-Threatening, Hospitalization)
  Sender: FDA-Public Use
  Company Number: DE-BRISTOL-MYERS SQUIBB COMPANY-15372675

PATIENT
  Age: 67 Year
  Sex: Male
  Weight: 85 kg

DRUGS (5)
  1. METFORMIN HCL [Suspect]
     Indication: TYPE 2 DIABETES MELLITUS
     Dosage: 1700MG
     Route: 048
     Dates: end: 20100928
  2. DICLOFENAC SODIUM [Suspect]
     Indication: PAIN
     Dosage: DICLOFENAC DISPERS
     Route: 048
     Dates: start: 20100920, end: 20100928
  3. FUROSEMIDE [Suspect]
     Indication: LEFT VENTRICULAR FAILURE
     Dosage: 40MG(40MG 1 IN 1 DAY)TILL 20SEP2010 INCREASED TO 80MG(40MG 2 IN 1 DAY)FROM 20SEP2010 DUR:9 DAYS
     Route: 048
     Dates: start: 20100920
  4. LISINOPRIL [Concomitant]
     Indication: HYPERTENSIVE HEART DISEASE
     Route: 048
  5. AMLODIPINE [Concomitant]
     Indication: HYPERTENSIVE HEART DISEASE
     Route: 048

REACTIONS (3)
  - CONVULSION [None]
  - LACTIC ACIDOSIS [None]
  - RENAL FAILURE ACUTE [None]
